FAERS Safety Report 6529628-X (Version None)
Quarter: 2010Q1

REPORT INFORMATION
  Report Type: 
  Country: None (occurrence: None)
  Receive Date: 20100107
  Receipt Date: 20091228
  Transmission Date: 20100710
  Serious: Yes (Hospitalization)
  Sender: FDA-Public Use
  Company Number: MA-SANOFI-AVENTIS-2009SA011334

PATIENT
  Age: 49 Year
  Sex: Male

DRUGS (6)
  1. OXALIPLATIN [Suspect]
     Route: 041
     Dates: start: 20090115, end: 20090115
  2. OXALIPLATIN [Suspect]
     Route: 041
  3. BEVACIZUMAB [Suspect]
     Route: 041
     Dates: start: 20090115, end: 20090115
  4. BEVACIZUMAB [Suspect]
     Route: 041
  5. LEUCOVORIN CALCIUM [Suspect]
     Route: 041
     Dates: start: 20090115, end: 20090115
  6. LEUCOVORIN CALCIUM [Suspect]
     Route: 041

REACTIONS (1)
  - GASTRIC PERFORATION [None]
